FAERS Safety Report 17813325 (Version 1)
Quarter: 2020Q2

REPORT INFORMATION
  Report Type: Spontaneous
  Country: SE (occurrence: SE)
  Receive Date: 20200521
  Receipt Date: 20200521
  Transmission Date: 20200714
  Serious: Yes (Hospitalization)
  Sender: FDA-Public Use
  Company Number: SE-TEVA-2020-SE-1236371

PATIENT
  Age: 75 Year
  Sex: Male

DRUGS (33)
  1. IRINOTECAN [Suspect]
     Active Substance: IRINOTECAN
     Indication: OESOPHAGEAL CARCINOMA
     Route: 042
     Dates: start: 20200421, end: 20200421
  2. ADDAVEN  KONCENTRAT TILL INFUSIONSV?TSKA, L?SNING [Concomitant]
     Dates: start: 20200212
  3. CANDEXETIL 16 MG TABLETT [Concomitant]
     Dates: start: 20200320
  4. EMEND [Concomitant]
     Active Substance: APREPITANT
     Dosage: ACCORDING TO A SEPARATE TREATMENT SCHEDULE
     Dates: start: 20200402
  5. NATRIUMKLORID EVOLAN 500 MG KAPSEL, H?RD [Concomitant]
     Dates: start: 20191125
  6. OXYNORM 5 MG KAPSEL, H?RD [Concomitant]
     Dosage: 1-2 CAPSULES IF NEEDED MAX 6 PCS PER DAY
     Dates: start: 20200325
  7. ACETYLCYSTEIN MEDA 200 MG BRUSTABLETT [Concomitant]
     Dates: start: 20190814
  8. PRIMPERAN 10 MG TABLETT [Concomitant]
     Dosage: ACCORDING TO A SEPARATE TREATMENT SCHEDULE
     Dates: start: 20200402
  9. AMLODIPIN ACCORD 10 MG TABLETT [Concomitant]
     Dosage: 20 MG
     Dates: start: 20200310
  10. ALVEDON 500 MG BRUSTABLETT [Concomitant]
     Dates: start: 20200319
  11. ONDANSETRON FRESENIUS KABI 2 MG/ML INJEKTIONSV?TSKA, L?SNING [Concomitant]
     Dosage: ACCORDING TO A SEPARATE BATCHING SCHEME.
     Dates: start: 20200402
  12. OXALIPLATIN. [Suspect]
     Active Substance: OXALIPLATIN
     Indication: OESOPHAGEAL CARCINOMA
     Dosage: DOSE 1
     Route: 042
     Dates: start: 20200421, end: 20200421
  13. SOOLANTRA 10 MG/G KR?M [Concomitant]
     Dosage: 1 TIME / DAY
     Dates: start: 20171115
  14. TARGINIQ 20 MG/10 MG DEPOTTABLETT [Concomitant]
     Dates: start: 20200416
  15. OXASCAND 5 MG TABLETT [Concomitant]
     Active Substance: OXAZEPAM
     Dosage: MAX 4 PCS / DAY
     Dates: start: 20191221
  16. CILAXORAL 7,5 MG/ML ORALA DROPPAR, L?SNING [Concomitant]
     Dosage: ACCORDING TO A SEPARATE TREATMENT SCHEDULE.
     Dates: start: 20200311
  17. ONDANSETRON TEVA 8 MG FILMDRAGERAD TABLETT [Concomitant]
     Dosage: ACCORDING TO A SEPARATE PROCESSING SCHEME
     Dates: start: 20200402
  18. INNOHEP 4500 ANTI-XA IE INJEKTIONSV?TSKA, L?SNING I F?RFYLLD SPRUTA [Concomitant]
     Dosage: 2 DOSAGE FORMS
     Dates: start: 20191010
  19. BISOLVON 1,6 MG/ML ORAL L?SNING [Concomitant]
     Dosage: MAX 15 ML / DAY
     Dates: start: 20191011
  20. OLIMEL N7E  INFUSIONSV?TSKA, EMULSION [Concomitant]
     Dosage: VB
     Dates: start: 20200212
  21. BETAPRED 0,5 MG TABLETT [Concomitant]
     Dosage: ACCORDING TO A SEPARATE TREATMENT SCHEDULE
     Dates: start: 20190822
  22. VITALIPID ADULT   KONCENTRAT TILL INFUSIONSV?TSKA, EMULSION [Concomitant]
     Dosage: CONCENTRATE FOR INFUSION, EMULSION
     Dates: start: 20200212
  23. GLYCERYL TRINITRATE [Concomitant]
     Active Substance: NITROGLYCERIN
     Route: 060
     Dates: start: 20150705
  24. BETAPRED 4 MG/ML INJEKTIONSV?TSKA, L?SNING [Concomitant]
     Dosage: ACCORDING TO A SEPARATE TREATMENT SCHEDULE
     Dates: start: 20200402
  25. BAKLOFEN MYLAN 10 MG TABLETT [Concomitant]
     Dosage: MAX 15 MG / DAY
     Dates: start: 20190916
  26. OXYNORM 10 MG/ML INJEKTIONSV?TSKA, L?SNING [Concomitant]
     Dosage: 0.5-1 ML IF NEEDED
     Dates: start: 20200322
  27. ESOMEPRAZOL KRKA 40 MG ENTEROKAPSEL, H?RD [Concomitant]
     Dates: start: 20191025
  28. SOLUVIT   PULVER TILL INFUSIONSV?TSKA, L?SNING [Concomitant]
     Dosage: VB
     Dates: start: 20200212
  29. VIAGRA 100 MG FILMDRAGERAD TABLETT [Concomitant]
     Dosage: MAX 1 PER DAY
     Dates: start: 20100726
  30. MOVICOL  PULVER TILL ORAL L?SNING I DOSP?SE [Concomitant]
     Dosage: 1-2 BAGS VB, MAX 4 / DAY
     Dates: start: 20200102
  31. OMEPRAZOL BLUEFISH 20 MG ENTEROTABLETT [Concomitant]
     Dates: start: 20200402
  32. PRIMPERAN 5 MG/ML INJEKTIONSV?TSKA, L?SNING [Concomitant]
     Dosage: ACCORDING TO A SEPARATE PROCESSING SCHEME
     Dates: start: 20200402
  33. VANCOCIN [Concomitant]
     Active Substance: VANCOMYCIN HYDROCHLORIDE
     Dates: start: 20200318

REACTIONS (4)
  - Chest discomfort [Recovered/Resolved]
  - Dizziness [Recovered/Resolved]
  - Temporomandibular joint syndrome [Recovered/Resolved]
  - Vision blurred [Recovered/Resolved]

NARRATIVE: CASE EVENT DATE: 20200421
